APPROVED DRUG PRODUCT: DOXEPIN HYDROCHLORIDE
Active Ingredient: DOXEPIN HYDROCHLORIDE
Strength: EQ 75MG BASE
Dosage Form/Route: CAPSULE;ORAL
Application: A072386 | Product #001
Applicant: PUREPAC PHARMACEUTICAL CO
Approved: Sep 8, 1988 | RLD: No | RS: No | Type: DISCN